FAERS Safety Report 5465446-1 (Version None)
Quarter: 2007Q3

REPORT INFORMATION
  Report Type: 
  Country: None (occurrence: None)
  Receive Date: 20070920
  Receipt Date: 20070910
  Transmission Date: 20080115
  Serious: Yes (Hospitalization)
  Sender: FDA-Public Use
  Company Number: 2007-04144

PATIENT
  Age: 48 Year
  Sex: Female

DRUGS (4)
  1. DEXAMETHASONE [Suspect]
     Indication: METASTASES TO CENTRAL NERVOUS SYSTEM
     Dosage: 4 MG, Q6H,  ORAL
     Route: 048
  2. TRAZODONE HCL [Concomitant]
  3. ZOLPIDEM TARTRATE [Concomitant]
  4. HALDOL [Concomitant]

REACTIONS (1)
  - ENCEPHALOPATHY [None]
